FAERS Safety Report 21171455 (Version 2)
Quarter: 2022Q3

REPORT INFORMATION
  Report Type: Spontaneous
  Country: US (occurrence: US)
  Receive Date: 20220804
  Receipt Date: 20220922
  Transmission Date: 20221027
  Serious: No
  Sender: FDA-Public Use
  Company Number: US-MYLANLABS-2022M1083800

PATIENT
  Age: 59 Year
  Sex: Male

DRUGS (1)
  1. SUNITINIB MALATE [Suspect]
     Active Substance: SUNITINIB MALATE
     Indication: Renal cancer stage IV
     Dosage: 50 MILLIGRAM, Q2W (EVERY 14 DAYS)
     Route: 048
     Dates: start: 201601

REACTIONS (4)
  - Drug ineffective [Unknown]
  - Product storage error [Unknown]
  - Product temperature excursion issue [Unknown]
  - Product availability issue [Unknown]

NARRATIVE: CASE EVENT DATE: 20220729
